FAERS Safety Report 8062500-5 (Version None)
Quarter: 2012Q1

REPORT INFORMATION
  Report Type: 
  Country: None (occurrence: None)
  Receive Date: 20120123
  Receipt Date: 20120112
  Transmission Date: 20120608
  Serious: Yes (Hospitalization)
  Sender: FDA-Public Use
  Company Number: US-BAYER-2011-073163

PATIENT
  Age: 24 Year
  Sex: Female
  Weight: 59 kg

DRUGS (7)
  1. ACETAMINOPHEN [Concomitant]
  2. ALBUTEROL [Concomitant]
  3. IBUPROFEN [Concomitant]
  4. SIMETHICONE [Concomitant]
  5. DOCUSATE [Concomitant]
  6. ALLEGRA [Concomitant]
     Dosage: UNK
     Dates: start: 20080623
  7. YAZ [Suspect]
     Indication: CONTRACEPTION
     Dosage: UNK
     Dates: start: 20090101, end: 20100101

REACTIONS (3)
  - INJURY [None]
  - PULMONARY THROMBOSIS [None]
  - PAIN [None]
